FAERS Safety Report 6740502-6 (Version None)
Quarter: 2010Q2

REPORT INFORMATION
  Report Type: 
  Country: None (occurrence: None)
  Receive Date: 20100520
  Receipt Date: 20100329
  Transmission Date: 20101027
  Serious: Yes (Other)
  Sender: FDA-Public Use
  Company Number: 2010022456

PATIENT
  Age: 44 Year
  Sex: Female
  Weight: 82.5 kg

DRUGS (5)
  1. DEPO-PROVERA [Suspect]
     Indication: CONTRACEPTION
     Dosage: 150 MG, EVERY 3 MONTHS, INTRAMUSCULAR
     Route: 030
     Dates: start: 20010601
  2. VYTORIN [Concomitant]
  3. NADOLOL [Concomitant]
  4. XANAX [Concomitant]
  5. LUNESTA [Concomitant]

REACTIONS (7)
  - DYSPNOEA [None]
  - FEELING HOT [None]
  - PRURITUS [None]
  - RASH [None]
  - SWELLING [None]
  - TACHYCARDIA [None]
  - URTICARIA [None]
